FAERS Safety Report 6900457-8 (Version None)
Quarter: 2010Q3

REPORT INFORMATION
  Report Type: 
  Country: None (occurrence: None)
  Receive Date: 20100708
  Receipt Date: 20100303
  Transmission Date: 20110219
  Serious: Yes (Death)
  Sender: FDA-Public Use
  Company Number: 2010018210

PATIENT
  Age: 33 Year
  Sex: Male
  Weight: 59 kg

DRUGS (3)
  1. CHANTIX [Suspect]
     Indication: SMOKING CESSATION THERAPY
     Dates: start: 20070104
  2. MINOCYCLINE HCL [Concomitant]
  3. WELLBUTRIN XL [Concomitant]

REACTIONS (1)
  - COMPLETED SUICIDE [None]
